FAERS Safety Report 8354733-5 (Version None)
Quarter: 2012Q2

REPORT INFORMATION
  Report Type: 
  Country: None (occurrence: None)
  Receive Date: 20120511
  Receipt Date: 20120504
  Transmission Date: 20120825
  Serious: Yes (Other)
  Sender: FDA-Public Use
  Company Number: PH-VIIV HEALTHCARE LIMITED-A0977180C

PATIENT
  Age: 33 Year
  Sex: Female

DRUGS (2)
  1. EPIVIR [Suspect]
     Indication: ANTIRETROVIRAL THERAPY
     Dosage: 100MGD PER DAY
     Route: 048
     Dates: start: 20010814, end: 20040206
  2. BARACLUDE [Suspect]
     Indication: ANTIRETROVIRAL THERAPY
     Route: 048
     Dates: start: 20010814, end: 20040206

REACTIONS (2)
  - MATERNAL EXPOSURE DURING PREGNANCY [None]
  - ANAEMIA [None]
